FAERS Safety Report 14152626 (Version 1)
Quarter: 2017Q4

REPORT INFORMATION
  Report Type: Spontaneous
  Country: US (occurrence: US)
  Receive Date: 20171102
  Receipt Date: 20171102
  Transmission Date: 20180321
  Serious: Yes (Other)
  Sender: FDA-Public Use
  Company Number: None

PATIENT
  Age: 58 Year
  Sex: Female
  Weight: 93.15 kg

DRUGS (5)
  1. PREDNISONE TABLETS 10 MG [Suspect]
     Active Substance: PREDNISONE
     Indication: MIDDLE EAR EFFUSION
     Dosage: ?          QUANTITY:21 TABLET(S);OTHER FREQUENCY:TAPER DOWN DOSAGE;?
     Route: 048
  2. FLONASE SENSAMIST [Concomitant]
  3. OMEGA 3 FLAXSEED CAPSULES [Concomitant]
  4. ATROVERT NASAL SPRAY [Concomitant]
  5. LOSARTAN. [Concomitant]
     Active Substance: LOSARTAN

REACTIONS (5)
  - Fatigue [None]
  - Palpitations [None]
  - Blood pressure increased [None]
  - Asthenia [None]
  - Pruritus [None]

NARRATIVE: CASE EVENT DATE: 20171031
